FAERS Safety Report 6148439-0 (Version None)
Quarter: 2009Q2

REPORT INFORMATION
  Report Type: 
  Country: None (occurrence: None)
  Receive Date: 20090408
  Receipt Date: 20090402
  Transmission Date: 20091009
  Serious: Yes (Death)
  Sender: FDA-Public Use
  Company Number: US-GILEAD-2009-0021280

PATIENT
  Sex: Female
  Weight: 68.736 kg

DRUGS (19)
  1. LETAIRIS [Suspect]
     Indication: PULMONARY ARTERIAL HYPERTENSION
     Route: 048
     Dates: start: 20090220
  2. FUROSEMIDE [Concomitant]
  3. METOPROLOL [Concomitant]
  4. PREDNISONE [Concomitant]
  5. SPIRIVA [Concomitant]
  6. SODIUM CHLORIDE [Concomitant]
  7. DOCUSATE SODIUM [Concomitant]
  8. GLIPIZIDE [Concomitant]
  9. NOVOLIN 70/30 [Concomitant]
  10. LEVOTHYROXINE SODIUM [Concomitant]
  11. PROTONIX [Concomitant]
  12. ACETAMINOPHEN [Concomitant]
  13. LEXAPRO [Concomitant]
  14. FENTANYL [Concomitant]
  15. BISAC-EVAC SUPPOSITORY [Concomitant]
  16. MIRALAX [Concomitant]
  17. LIDODERM [Concomitant]
  18. OXYCODONE HCL AND ACETAMINOPHEN [Concomitant]
  19. DEEP SEA NASAL SPRAY [Concomitant]

REACTIONS (1)
  - DEATH [None]
